FAERS Safety Report 10694173 (Version 2)
Quarter: 2015Q1

REPORT INFORMATION
  Report Type: Report from Study
  Country: US (occurrence: US)
  Receive Date: 20150106
  Receipt Date: 20150115
  Transmission Date: 20150721
  Serious: Yes (Hospitalization)
  Sender: FDA-Public Use
  Company Number: US-ACTELION-A-US2014-110646

PATIENT
  Age: 43 Year
  Sex: Female

DRUGS (7)
  1. CARVEDILOL. [Concomitant]
     Active Substance: CARVEDILOL
     Dosage: 3.125 MG, BID
     Dates: start: 20141103
  2. SPIRONOLACTONE. [Concomitant]
     Active Substance: SPIRONOLACTONE
     Dosage: 25 MG, BID
     Dates: start: 20141103
  3. MILRINONE [Concomitant]
     Active Substance: MILRINONE
     Dosage: 0.375 MCG/KG/MIN
     Route: 042
     Dates: start: 201412
  4. AMLODIPINE [Concomitant]
     Active Substance: AMLODIPINE BESYLATE
     Dosage: 5 MG, QD
     Dates: start: 20141104
  5. COUMADIN [Concomitant]
     Active Substance: WARFARIN SODIUM
  6. MACITENTAN [Suspect]
     Active Substance: MACITENTAN
     Indication: PULMONARY HYPERTENSION
     Dosage: 10 MG, QD
     Route: 048
     Dates: start: 201407, end: 201411
  7. ADCIRCA [Concomitant]
     Active Substance: TADALAFIL
     Dosage: 40 MG, QD

REACTIONS (2)
  - No therapeutic response [Unknown]
  - Cardiac failure acute [Unknown]

NARRATIVE: CASE EVENT DATE: 20141223
